FAERS Safety Report 23936321 (Version 2)
Quarter: 2024Q3

REPORT INFORMATION
  Report Type: Spontaneous
  Country: US (occurrence: US)
  Receive Date: 20240604
  Receipt Date: 20240720
  Transmission Date: 20241016
  Serious: Yes (Other)
  Sender: REGENERON
  Company Number: US-REGENERON PHARMACEUTICALS, INC.-2024-064837

PATIENT
  Sex: Male

DRUGS (10)
  1. EYLEA [Suspect]
     Active Substance: AFLIBERCEPT
     Indication: Diabetic retinal oedema
     Dosage: 2 MG EVERY 5-6 WEEKS INTO RIGHT EYE (FORMULATION: PFS GERRESHEIMER, STRENGTH: 2MG/0.05ML OR 40MG/ML)
     Dates: start: 20230711, end: 20240412
  2. EYLEA [Suspect]
     Active Substance: AFLIBERCEPT
     Indication: Diabetic retinopathy
     Dosage: 2 MG EVERY 5-6 WEEKS INTO RIGHT EYE (FORMULATION: PFS GERRESHEIMER, STRENGTH: 2MG/0.05ML OR 40MG/ML)
     Dates: start: 20230906, end: 20230906
  3. AMLODIPINE [Concomitant]
     Active Substance: AMLODIPINE BESYLATE
     Indication: Product used for unknown indication
     Dosage: 10 MG, DAILY
     Route: 048
  4. BROMFENAC [Concomitant]
     Active Substance: BROMFENAC
     Indication: Product used for unknown indication
     Dosage: UNK, DAILY, INTO RIGHT EYE (FORMULATION: DROPS)
  5. GLYBURIDE [Concomitant]
     Active Substance: GLYBURIDE
     Indication: Product used for unknown indication
     Dosage: 2.5 MG DAILY
     Route: 048
  6. LOSARTAN [Concomitant]
     Active Substance: LOSARTAN
     Indication: Product used for unknown indication
     Dosage: 100 MG, DAILY
     Route: 048
  7. METFORMIN [Concomitant]
     Active Substance: METFORMIN HYDROCHLORIDE
     Indication: Product used for unknown indication
     Dosage: 1000 MG, BID (TWICE A DAY)
     Route: 048
  8. PRAVASTATIN [Concomitant]
     Active Substance: PRAVASTATIN
     Indication: Product used for unknown indication
     Dosage: 40 MG,DAILY
     Route: 048
  9. VITAMIN D3 [Concomitant]
     Active Substance: CHOLECALCIFEROL
     Indication: Product used for unknown indication
     Dosage: UNK, DAILY
  10. PRED FORTE [Concomitant]
     Active Substance: PREDNISOLONE ACETATE
     Indication: Product used for unknown indication
     Dosage: UNK, QD INTO RIGHT EYE (FORMULATION: DROPS)

REACTIONS (4)
  - Retinal thickening [Not Recovered/Not Resolved]
  - Blindness transient [Recovered/Resolved]
  - Non-infectious endophthalmitis [Not Recovered/Not Resolved]
  - Product contamination [Unknown]

NARRATIVE: CASE EVENT DATE: 20240401
